FAERS Safety Report 10356842 (Version 2)
Quarter: 2014Q3

REPORT INFORMATION
  Report Type: Report from Study
  Country: CA (occurrence: CA)
  Receive Date: 20140801
  Receipt Date: 20140801
  Transmission Date: 20150326
  Serious: Yes (Death, Hospitalization)
  Sender: FDA-Public Use
  Company Number: PHHY2014CA028214

PATIENT
  Age: 61 Year
  Sex: Female
  Weight: 72.74 kg

DRUGS (3)
  1. SANDOSTATIN LAR DEPOT [Suspect]
     Active Substance: OCTREOTIDE ACETATE
     Indication: NEUROENDOCRINE CARCINOMA
     Dosage: 20 MG, ONCE A MONTH
     Route: 030
     Dates: start: 20140106, end: 201405
  2. CHEMOTHERAPEUTICS [Suspect]
     Active Substance: UNSPECIFIED INGREDIENT
     Dosage: UNK UKN, REDUCED BY 40 %
  3. CHEMOTHERAPEUTICS [Suspect]
     Active Substance: UNSPECIFIED INGREDIENT
     Dosage: UNK UKN, UNK
     Dates: start: 201402

REACTIONS (7)
  - Asthenia [Unknown]
  - Chest pain [Unknown]
  - Weight decreased [Unknown]
  - Urticaria [Unknown]
  - Malignant neoplasm progression [Unknown]
  - Blood uric acid increased [Unknown]
  - Death [Fatal]

NARRATIVE: CASE EVENT DATE: 201402
